FAERS Safety Report 8992022 (Version 1)
Quarter: 2012Q4

REPORT INFORMATION
  Report Type: 
  Country: US (occurrence: US)
  Receive Date: 20121231
  Receipt Date: 20121231
  Transmission Date: 20130627
  Serious: Yes (Other)
  Sender: FDA-Public Use
  Company Number: CHPA2012US025603

PATIENT
  Age: 60 Year
  Sex: Male

DRUGS (2)
  1. CONTROL PLP [Suspect]
     Indication: SMOKING CESSATION THERAPY
     Dosage: 21 mg, QD
     Route: 062
     Dates: start: 20121210
  2. NICOTINE [Suspect]
     Indication: SMOKING CESSATION THERAPY
     Dosage: Unk, Unk

REACTIONS (3)
  - Mania [Recovered/Resolved]
  - Treatment noncompliance [Unknown]
  - Overdose [Unknown]
